FAERS Safety Report 15716457 (Version 1)
Quarter: 2018Q4

REPORT INFORMATION
  Report Type: Spontaneous
  Country: US (occurrence: US)
  Receive Date: 20181213
  Receipt Date: 20181213
  Transmission Date: 20190205
  Serious: No
  Sender: FDA-Public Use
  Company Number: US-DRREDDYS-USA/USA/18/0103004

PATIENT
  Age: 73 Year
  Sex: Female
  Weight: 51 kg

DRUGS (1)
  1. OMEPRAZOLE. [Suspect]
     Active Substance: OMEPRAZOLE
     Indication: GASTROOESOPHAGEAL REFLUX DISEASE
     Route: 065

REACTIONS (5)
  - Weight decreased [Unknown]
  - Paraesthesia [Unknown]
  - Muscular weakness [Unknown]
  - Incorrect product administration duration [Unknown]
  - Fatigue [Unknown]

NARRATIVE: CASE EVENT DATE: 20180801
